FAERS Safety Report 24621682 (Version 1)
Quarter: 2024Q4

REPORT INFORMATION
  Report Type: Spontaneous
  Country: CA (occurrence: CA)
  Receive Date: 20241114
  Receipt Date: 20241114
  Transmission Date: 20250115
  Serious: Yes (Hospitalization, Other)
  Sender: PFIZER
  Company Number: CA-PFIZER INC-202400297819

PATIENT
  Sex: Female

DRUGS (12)
  1. DOXORUBICIN HYDROCHLORIDE [Suspect]
     Active Substance: DOXORUBICIN HYDROCHLORIDE
     Indication: Breast cancer female
     Dosage: 60 MG/M2
     Route: 042
  2. CYCLOPHOSPHAMIDE [Suspect]
     Active Substance: CYCLOPHOSPHAMIDE
     Indication: Breast cancer female
     Dosage: 600 MG/M2
     Route: 042
  3. PEGFILGRASTIM [Suspect]
     Active Substance: PEGFILGRASTIM
     Indication: Prophylaxis
     Dosage: UNK
     Route: 058
  4. PEGFILGRASTIM [Suspect]
     Active Substance: PEGFILGRASTIM
     Indication: Neutropenia
  5. PEGFILGRASTIM [Suspect]
     Active Substance: PEGFILGRASTIM
     Indication: Prophylaxis
  6. PEGFILGRASTIM [Suspect]
     Active Substance: PEGFILGRASTIM
     Indication: Neutropenia
  7. DEXAMETHASONE [Suspect]
     Active Substance: DEXAMETHASONE
     Indication: Vomiting
     Dosage: 12 MG
     Route: 048
  8. DEXAMETHASONE [Suspect]
     Active Substance: DEXAMETHASONE
     Indication: Nausea
  9. NETUPITANT AND PALONOSETRON HYDROCHLORIDE [Concomitant]
     Indication: Vomiting
     Dosage: 1 DF
     Route: 048
  10. NETUPITANT AND PALONOSETRON HYDROCHLORIDE [Concomitant]
     Indication: Nausea
  11. NETUPITANT AND PALONOSETRON HYDROCHLORIDE [Concomitant]
     Indication: Vomiting
  12. NETUPITANT AND PALONOSETRON HYDROCHLORIDE [Concomitant]
     Indication: Nausea

REACTIONS (2)
  - Febrile neutropenia [Recovered/Resolved]
  - Neoplasm progression [Recovered/Resolved]
